FAERS Safety Report 6371996-6 (Version None)
Quarter: 2009Q3

REPORT INFORMATION
  Report Type: 
  Country: None (occurrence: None)
  Receive Date: 20090917
  Receipt Date: 20090904
  Transmission Date: 20100115
  Serious: Yes (Hospitalization)
  Sender: FDA-Public Use
  Company Number: ADR16482009

PATIENT
  Age: 79 Year
  Sex: Female

DRUGS (2)
  1. CITALOPRAM [Suspect]
     Indication: DEPRESSION
     Dosage: 20 MG/DAY, ORAL
     Route: 048
     Dates: start: 20031015, end: 20060118
  2. BENDROFLUMETHIAZIDE [Concomitant]

REACTIONS (1)
  - HOSPITALISATION [None]
